FAERS Safety Report 7153155-2 (Version None)
Quarter: 2010Q4

REPORT INFORMATION
  Report Type: 
  Country: None (occurrence: None)
  Receive Date: 20101130
  Receipt Date: 20101117
  Transmission Date: 20110411
  Serious: Yes (Hospitalization)
  Sender: FDA-Public Use
  Company Number: PIR#1011036

PATIENT
  Age: 59 Year
  Sex: Female

DRUGS (1)
  1. POTASSIUM [Suspect]

REACTIONS (13)
  - APPETITE DISORDER [None]
  - ASTHENIA [None]
  - BALANCE DISORDER [None]
  - DYSARTHRIA [None]
  - HYPOPHAGIA [None]
  - INCONTINENCE [None]
  - LOCKED-IN SYNDROME [None]
  - MUSCULAR WEAKNESS [None]
  - OSMOTIC DEMYELINATION SYNDROME [None]
  - PNEUMONIA ASPIRATION [None]
  - STAPHYLOCOCCAL SEPSIS [None]
  - TREMOR [None]
  - UNRESPONSIVE TO STIMULI [None]
